FAERS Safety Report 11054356 (Version 1)
Quarter: 2015Q2

REPORT INFORMATION
  Report Type: Spontaneous
  Country: DK (occurrence: None)
  Receive Date: 20150420
  Receipt Date: 20150420
  Transmission Date: 20150821
  Serious: Yes (Death, Hospitalization)
  Sender: FDA-Public Use
  Company Number: ABR_02157_2015

PATIENT
  Age: 22 Year
  Sex: Male

DRUGS (2)
  1. AMPHETAMINE [Suspect]
     Active Substance: AMPHETAMINE
     Indication: PRODUCT USED FOR UNKNOWN INDICATION
     Dosage: DF
  2. 25C- NBOME [Suspect]
     Active Substance: 4-CHLORO-2,5-DIMETHOXY-N-(2-METHOXYBENZYL)PHENETHYLAMINE
     Indication: PRODUCT USED FOR UNKNOWN INDICATION
     Dosage: DF, NASAL
     Route: 045

REACTIONS (13)
  - Drug interaction [None]
  - Rhabdomyolysis [None]
  - Respiratory acidosis [None]
  - Disseminated intravascular coagulation [None]
  - Serotonin syndrome [None]
  - Hyperthermia [None]
  - Seizure [None]
  - Atrial fibrillation [None]
  - Multi-organ failure [None]
  - Loss of consciousness [None]
  - Ventricular tachycardia [None]
  - Drug abuse [None]
  - Metabolic acidosis [None]

NARRATIVE: CASE EVENT DATE: 20140622
